FAERS Safety Report 8239084-1 (Version None)
Quarter: 2012Q1

REPORT INFORMATION
  Report Type: 
  Country: None (occurrence: None)
  Receive Date: 20120327
  Receipt Date: 20120322
  Transmission Date: 20120608
  Serious: Yes (Hospitalization)
  Sender: FDA-Public Use
  Company Number: JP-VERTEX PHARMACEUTICALS INC.-AE-2012-004278

PATIENT
  Age: 57 Year
  Sex: Female

DRUGS (8)
  1. RIBAVIRIN [Concomitant]
     Route: 048
     Dates: start: 20120312
  2. PEGINTERFERON [Concomitant]
     Indication: HEPATITIS C
     Route: 058
     Dates: start: 20120130, end: 20120226
  3. RIBAVIRIN [Concomitant]
     Route: 048
     Dates: start: 20120305, end: 20120311
  4. TELAVIC (TELAPREVIR) [Suspect]
     Indication: HEPATITIS C
     Route: 048
     Dates: start: 20120130, end: 20120203
  5. TELAVIC (TELAPREVIR) [Suspect]
     Route: 048
     Dates: start: 20120203
  6. RIBAVIRIN [Concomitant]
     Indication: HEPATITIS C
     Route: 048
     Dates: start: 20120130, end: 20120304
  7. PEGINTERFERON [Concomitant]
     Route: 058
     Dates: start: 20120227, end: 20120227
  8. PEGINTERFERON [Concomitant]
     Route: 058
     Dates: start: 20120305

REACTIONS (1)
  - DRUG ERUPTION [None]
